FAERS Safety Report 18657815 (Version 1)
Quarter: 2020Q4

REPORT INFORMATION
  Report Type: Spontaneous
  Country: FR (occurrence: FR)
  Receive Date: 20201223
  Receipt Date: 20201223
  Transmission Date: 20210114
  Serious: Yes (Hospitalization)
  Sender: FDA-Public Use
  Company Number: FR-ASTRAZENECA-2020SF52734

PATIENT
  Age: 1 Month
  Sex: Male
  Weight: 3.1 kg

DRUGS (7)
  1. INEXIUM [Suspect]
     Active Substance: ESOMEPRAZOLE
     Indication: GASTROOESOPHAGEAL REFLUX DISEASE
     Dosage: 8 MILLIGRAM, 1/DAY
     Route: 048
     Dates: start: 20201103, end: 20201121
  2. INEXIUM [Suspect]
     Active Substance: ESOMEPRAZOLE
     Indication: PRODUCT USED FOR UNKNOWN INDICATION
     Dosage: UNKNOWN
     Route: 048
     Dates: start: 20201112
  3. INEXIUM [Suspect]
     Active Substance: ESOMEPRAZOLE
     Indication: PRODUCT USED FOR UNKNOWN INDICATION
     Dosage: 9 MILLIGRAM, 1/DAY
     Route: 048
     Dates: start: 20201121, end: 20201208
  4. INEXIUM [Suspect]
     Active Substance: ESOMEPRAZOLE
     Indication: PRODUCT USED FOR UNKNOWN INDICATION
     Dosage: 8 MILLIGRAM, 1/DAY
     Route: 048
     Dates: start: 20201103, end: 20201121
  5. INEXIUM [Suspect]
     Active Substance: ESOMEPRAZOLE
     Indication: GASTROOESOPHAGEAL REFLUX DISEASE
     Dosage: UNKNOWN
     Route: 048
     Dates: start: 20201112
  6. INEXIUM [Suspect]
     Active Substance: ESOMEPRAZOLE
     Indication: GASTROOESOPHAGEAL REFLUX DISEASE
     Dosage: 9 MILLIGRAM, 1/DAY
     Route: 048
     Dates: start: 20201121, end: 20201208
  7. SODIUM ALGINATE [Concomitant]
     Active Substance: SODIUM ALGINATE

REACTIONS (7)
  - Hepatic enzyme increased [Unknown]
  - Vomiting [Not Recovered/Not Resolved]
  - Prescribed overdose [Unknown]
  - Off label use [Unknown]
  - Product preparation issue [Unknown]
  - Gastrointestinal viral infection [Unknown]
  - Product use issue [Unknown]

NARRATIVE: CASE EVENT DATE: 20201201
